FAERS Safety Report 20168533 (Version 2)
Quarter: 2021Q4

REPORT INFORMATION
  Report Type: Spontaneous
  Country: JP (occurrence: JP)
  Receive Date: 20211210
  Receipt Date: 20211215
  Transmission Date: 20220303
  Serious: Yes (Life-Threatening, Hospitalization, Other)
  Sender: FDA-Public Use
  Company Number: JP-MLMSERVICE-20211125-3237781-1

PATIENT
  Age: 64 Year
  Sex: Male

DRUGS (2)
  1. CARBOPLATIN [Suspect]
     Active Substance: CARBOPLATIN
     Indication: Small cell lung cancer
     Dosage: AREA UNDER THE CURVE (AUC) 6 MG/ML/MIN
  2. ETOPOSIDE [Suspect]
     Active Substance: ETOPOSIDE
     Indication: Small cell lung cancer

REACTIONS (12)
  - Empyema [Recovering/Resolving]
  - Amoebic colitis [Recovered/Resolved]
  - Septic shock [Recovering/Resolving]
  - Pneumothorax [Recovering/Resolving]
  - Febrile neutropenia [Recovering/Resolving]
  - Peptostreptococcus infection [Recovering/Resolving]
  - Liver abscess [Recovering/Resolving]
  - Portal vein thrombosis [Recovering/Resolving]
  - Intestinal perforation [Recovering/Resolving]
  - Fungal infection [Recovering/Resolving]
  - Ileal perforation [Recovering/Resolving]
  - Staphylococcal infection [Recovering/Resolving]
